FAERS Safety Report 6058336-7 (Version None)
Quarter: 2009Q1

REPORT INFORMATION
  Report Type: 
  Country: None (occurrence: None)
  Receive Date: 20090130
  Receipt Date: 20090122
  Transmission Date: 20090719
  Serious: Yes (Hospitalization, Other)
  Sender: FDA-Public Use
  Company Number: US-AMGEN-QUU329756

PATIENT
  Sex: Female

DRUGS (1)
  1. ENBREL [Suspect]
     Indication: PSORIASIS
     Route: 058
     Dates: start: 20081101, end: 20081101

REACTIONS (7)
  - ABDOMINAL PAIN [None]
  - COLITIS [None]
  - DIZZINESS [None]
  - HAEMOGLOBIN DECREASED [None]
  - MULTIPLE SCLEROSIS [None]
  - RECTAL HAEMORRHAGE [None]
  - TRANSIENT ISCHAEMIC ATTACK [None]
